FAERS Safety Report 15577735 (Version 3)
Quarter: 2025Q3

REPORT INFORMATION
  Report Type: Spontaneous
  Country: EU (occurrence: EU)
  Receive Date: 20181102
  Receipt Date: 20250717
  Transmission Date: 20251020
  Serious: Yes (Hospitalization, Other)
  Sender: AUROBINDO
  Company Number: EU-AUROBINDO-AUR-APL-2018-053437

PATIENT
  Age: 39 Year
  Sex: Female

DRUGS (1)
  1. QUETIAPINE [Suspect]
     Active Substance: QUETIAPINE
     Indication: Psychotic disorder
     Route: 048

REACTIONS (4)
  - Cardiogenic shock [Recovered/Resolved]
  - Cardiac failure [Recovered/Resolved]
  - Cardiomyopathy [Recovered/Resolved]
  - Pericardial effusion [Recovered/Resolved]
